FAERS Safety Report 5385406-9 (Version None)
Quarter: 2007Q3

REPORT INFORMATION
  Report Type: 
  Country: None (occurrence: None)
  Receive Date: 20070709
  Receipt Date: 20070627
  Transmission Date: 20080115
  Serious: No
  Sender: FDA-Public Use
  Company Number: 2007-160533-NL

PATIENT
  Sex: Male

DRUGS (4)
  1. MIRTAZAPINE [Suspect]
     Dosage: 30 MG
     Dates: start: 20061201, end: 20070301
  2. VENLAFAXIINE HCL [Concomitant]
  3. LITHIUM CARBONATE [Concomitant]
  4. ALCOHOL [Concomitant]

REACTIONS (4)
  - AMNESIA [None]
  - CONFUSIONAL STATE [None]
  - DISORIENTATION [None]
  - ROAD TRAFFIC ACCIDENT [None]
